FAERS Safety Report 4528140-7 (Version None)
Quarter: 2004Q4

REPORT INFORMATION
  Report Type: 
  Country: None (occurrence: None)
  Receive Date: 20041130
  Receipt Date: 20040930
  Transmission Date: 20050328
  Serious: No
  Sender: FDA-Public Use
  Company Number: 702306

PATIENT
  Age: 41 Year
  Sex: Female
  Weight: 63.5036 kg

DRUGS (1)
  1. AMEVIVE [Suspect]
     Indication: PSORIASIS
     Dates: start: 20031101, end: 20040501

REACTIONS (2)
  - PRURITUS [None]
  - PSORIASIS [None]
